FAERS Safety Report 5421724-3 (Version None)
Quarter: 2007Q3

REPORT INFORMATION
  Report Type: 
  Country: None (occurrence: None)
  Receive Date: 20070820
  Receipt Date: 20070809
  Transmission Date: 20080115
  Serious: Yes (Hospitalization)
  Sender: FDA-Public Use
  Company Number: 2007-01942

PATIENT
  Age: 69 Year
  Sex: Female
  Weight: 72.6 kg

DRUGS (12)
  1. VELCADE [Suspect]
     Indication: MULTIPLE MYELOMA
     Dosage: 1.30 MG/M2, IV BOLUS
     Route: 040
     Dates: start: 20070522, end: 20070601
  2. DECADRON [Concomitant]
  3. LEVAQUIN [Concomitant]
  4. PHENERGAN [Concomitant]
  5. PRILOSEC [Concomitant]
  6. HYDROCODONE W/ACETYLSALICYLIC ACID (ACETYLSALICYLIC ACID, HYDROCHLORID [Concomitant]
  7. POTASSIUM CHLORIDE [Concomitant]
  8. ALLOPURINOL [Concomitant]
  9. DAYPRO [Concomitant]
  10. SENOKOT [Concomitant]
  11. OSCAL (CALCIUM CARBONATE) [Concomitant]
  12. FERROUS SULFATE TAB [Concomitant]

REACTIONS (13)
  - ANAEMIA [None]
  - ASTHENIA [None]
  - ATRIAL FLUTTER [None]
  - BLOOD SODIUM DECREASED [None]
  - BRAIN NATRIURETIC PEPTIDE INCREASED [None]
  - CONFUSIONAL STATE [None]
  - FIBRIN D DIMER INCREASED [None]
  - FIBRIN DEGRADATION PRODUCTS INCREASED [None]
  - HYPERTENSION [None]
  - PULMONARY EMBOLISM [None]
  - SUPRAVENTRICULAR TACHYCARDIA [None]
  - SYNCOPE [None]
  - THROMBOCYTOPENIA [None]
